FAERS Safety Report 10755470 (Version 1)
Quarter: 2015Q1

REPORT INFORMATION
  Report Type: Spontaneous
  Country: US (occurrence: None)
  Receive Date: 20150123
  Receipt Date: 20150123
  Transmission Date: 20150721
  Serious: No
  Sender: FDA-Public Use
  Company Number: 2014TUS008468

PATIENT
  Age: 59 Year
  Sex: Male
  Weight: 62.6 kg

DRUGS (2)
  1. ENTYVIO [Suspect]
     Active Substance: VEDOLIZUMAB
     Indication: CROHN^S DISEASE
     Dosage: 1 DOSE
     Route: 042
     Dates: start: 20140811, end: 20140811
  2. ENTOCORT (BUDESONIDE) [Concomitant]

REACTIONS (3)
  - Myalgia [None]
  - Dry skin [None]
  - Arthralgia [None]

NARRATIVE: CASE EVENT DATE: 20140811
